FAERS Safety Report 8799712 (Version 2)
Quarter: 2013Q4

REPORT INFORMATION
  Report Type: Spontaneous
  Country: DE (occurrence: DE)
  Receive Date: 20120919
  Receipt Date: 20131031
  Transmission Date: 20140711
  Serious: Yes (Hospitalization)
  Sender: FDA-Public Use
  Company Number: DE-009507513-1209DEU004597

PATIENT
  Age: 62 Year
  Sex: Male

DRUGS (3)
  1. JANUMET [Suspect]
     Indication: DIABETES MELLITUS
     Dosage: UNK, QD
     Route: 048
     Dates: start: 2008, end: 201203
  2. JANUMET [Suspect]
     Dosage: UNK
     Route: 048
     Dates: start: 20120723
  3. AVALOX [Concomitant]
     Dosage: UNK
     Dates: start: 201203

REACTIONS (3)
  - Cardiac failure [Recovering/Resolving]
  - Cardiac failure [Not Recovered/Not Resolved]
  - Drug administration error [Unknown]
